FAERS Safety Report 8111773-9 (Version None)
Quarter: 2012Q1

REPORT INFORMATION
  Report Type: 
  Country: None (occurrence: None)
  Receive Date: 20120203
  Receipt Date: 20120202
  Transmission Date: 20120608
  Serious: No
  Sender: FDA-Public Use
  Company Number: US-PFIZER INC-2012029220

PATIENT
  Sex: Female
  Weight: 56.689 kg

DRUGS (2)
  1. ALPRAZOLAM [Suspect]
     Indication: ANXIETY
     Dosage: 1 MG, 2X/DAY
     Dates: start: 20060101
  2. SEROQUEL [Suspect]
     Indication: SCHIZOPHRENIA
     Dosage: 100 MG,DAILY
     Dates: start: 20120118

REACTIONS (1)
  - DRUG SCREEN FALSE POSITIVE [None]
